FAERS Safety Report 5463479-2 (Version None)
Quarter: 2007Q3

REPORT INFORMATION
  Report Type: 
  Country: None (occurrence: None)
  Receive Date: 20070920
  Receipt Date: 20070913
  Transmission Date: 20080115
  Serious: Yes (Hospitalization)
  Sender: FDA-Public Use
  Company Number: US-PFIZER INC-2007063986

PATIENT
  Sex: Male
  Weight: 123 kg

DRUGS (7)
  1. PREDNISONE [Suspect]
     Indication: PROSTATE CANCER
     Route: 048
     Dates: start: 20070611
  2. SUTENT [Suspect]
     Indication: PROSTATE CANCER
     Route: 048
  3. DOCETAXEL [Suspect]
     Indication: PROSTATE CANCER
     Route: 042
  4. TUCKS [Concomitant]
     Indication: HAEMORRHOIDS
     Route: 054
  5. COLACE [Concomitant]
     Indication: CONSTIPATION
     Route: 048
  6. COLACE [Concomitant]
     Indication: HAEMORRHOIDS
  7. DEXAMETHASONE 0.5MG TAB [Concomitant]
     Indication: PREMEDICATION
     Dosage: TEXT:8 MG X 3 DOSES
     Route: 048
     Dates: start: 20070610

REACTIONS (2)
  - FEBRILE NEUTROPENIA [None]
  - TOOTH ABSCESS [None]
